FAERS Safety Report 15673086 (Version 1)
Quarter: 2018Q4

REPORT INFORMATION
  Report Type: Report from Study
  Country: ES (occurrence: ES)
  Receive Date: 20181129
  Receipt Date: 20181129
  Transmission Date: 20190205
  Serious: Yes (Other)
  Sender: FDA-Public Use
  Company Number: ES-JNJFOC-20181131875

PATIENT

DRUGS (1)
  1. IBRUTINIB [Suspect]
     Active Substance: IBRUTINIB
     Indication: CHRONIC LYMPHOCYTIC LEUKAEMIA
     Route: 048
     Dates: start: 201410, end: 201809

REACTIONS (8)
  - Diarrhoea [Unknown]
  - Nausea [Unknown]
  - Petechiae [Unknown]
  - Constipation [Unknown]
  - Haemorrhage [Unknown]
  - Respiratory tract infection [Unknown]
  - Haematoma [Unknown]
  - Adverse event [Unknown]
